FAERS Safety Report 7117700-5 (Version None)
Quarter: 2010Q4

REPORT INFORMATION
  Report Type: 
  Country: None (occurrence: None)
  Receive Date: 20101123
  Receipt Date: 20101115
  Transmission Date: 20110411
  Serious: Yes (Hospitalization)
  Sender: FDA-Public Use
  Company Number: US-BIOGENIDEC-2010BI040462

PATIENT
  Age: 54 Year
  Sex: Male

DRUGS (5)
  1. AVONEX [Suspect]
     Indication: MULTIPLE SCLEROSIS
     Route: 030
  2. AVONEX [Suspect]
     Route: 030
     Dates: start: 19990401, end: 20070419
  3. NOVANTRONE [Concomitant]
     Indication: MULTIPLE SCLEROSIS
  4. IMMUNE GLOBULIN INTRAVENOUS (HUMAN) [Concomitant]
     Indication: MULTIPLE SCLEROSIS
  5. BETASERON [Concomitant]
     Indication: MULTIPLE SCLEROSIS

REACTIONS (3)
  - CEREBROVASCULAR ACCIDENT [None]
  - INJECTION SITE REACTION [None]
  - MOBILITY DECREASED [None]
